FAERS Safety Report 16273092 (Version 2)
Quarter: 2019Q3

REPORT INFORMATION
  Report Type: Spontaneous
  Country: IT (occurrence: IT)
  Receive Date: 20190506
  Receipt Date: 20190821
  Transmission Date: 20191004
  Serious: Yes (Life-Threatening, Other)
  Sender: FDA-Public Use
  Company Number: IT-AUROBINDO-AUR-APL-2019-024296

PATIENT

DRUGS (6)
  1. QUETIAPINE. [Suspect]
     Active Substance: QUETIAPINE
     Dosage: 200 MILLIGRAM IN TOTAL
     Route: 048
     Dates: start: 20181028, end: 20181028
  2. PROZAC [Suspect]
     Active Substance: FLUOXETINE HYDROCHLORIDE
     Indication: DEPRESSION
     Dosage: 20 MILLIGRAM, ONCE A DAY
     Route: 048
  3. QUETIAPINE. [Suspect]
     Active Substance: QUETIAPINE
     Indication: DEPRESSION
     Dosage: 200 MILLIGRAM, ONCE A DAY
     Route: 048
  4. HALCION [Suspect]
     Active Substance: TRIAZOLAM
     Indication: INSOMNIA
     Dosage: 125 MICROGRAM, ONCE A DAY
     Route: 048
  5. HALCION [Suspect]
     Active Substance: TRIAZOLAM
     Dosage: 125 MICROGRAM IN TOTAL
     Route: 048
     Dates: start: 20181028, end: 20181028
  6. PROZAC [Suspect]
     Active Substance: FLUOXETINE HYDROCHLORIDE
     Dosage: 20 MILLIGRAM IN TOTAL
     Route: 048
     Dates: start: 20181028, end: 20181028

REACTIONS (6)
  - Sopor [Recovering/Resolving]
  - Aggression [Recovering/Resolving]
  - Miosis [Recovering/Resolving]
  - Drug abuse [Recovering/Resolving]
  - Bronchospasm [Recovering/Resolving]
  - Wheezing [Recovering/Resolving]

NARRATIVE: CASE EVENT DATE: 20181028
